FAERS Safety Report 7668602-7 (Version None)
Quarter: 2011Q3

REPORT INFORMATION
  Report Type: 
  Country: None (occurrence: None)
  Receive Date: 20110808
  Receipt Date: 20110808
  Transmission Date: 20111222
  Serious: Yes (Hospitalization)
  Sender: FDA-Public Use
  Company Number: None

PATIENT
  Age: 33 Year
  Sex: Female
  Weight: 87.996 kg

DRUGS (1)
  1. AMPICILLIN SODIUM [Suspect]
     Indication: URINARY TRACT INFECTION
     Dosage: 250MG
     Route: 048
     Dates: start: 20110802, end: 20110803

REACTIONS (3)
  - OEDEMA [None]
  - URTICARIA [None]
  - RESPIRATORY DISTRESS [None]
